FAERS Safety Report 18440245 (Version 1)
Quarter: 2020Q4

REPORT INFORMATION
  Report Type: Spontaneous
  Country: US (occurrence: US)
  Receive Date: 20201029
  Receipt Date: 20201029
  Transmission Date: 20210114
  Serious: No
  Sender: FDA-Public Use
  Company Number: US-BAYER-2020-229505

PATIENT
  Age: 93 Year
  Sex: Female

DRUGS (2)
  1. SLEEP FORMULA [Concomitant]
  2. MIRALAX [Suspect]
     Active Substance: POLYETHYLENE GLYCOL 3350
     Indication: GASTROINTESTINAL DISORDER
     Dosage: UNK (1 PACKET IN THE MORNING)
     Route: 048
     Dates: end: 20201022

REACTIONS (4)
  - Drug ineffective [Unknown]
  - Incorrect product administration duration [Unknown]
  - Expired product administered [None]
  - Product label issue [None]
